FAERS Safety Report 17843157 (Version 1)
Quarter: 2020Q2

REPORT INFORMATION
  Report Type: Spontaneous
  Country: CA (occurrence: CA)
  Receive Date: 20200530
  Receipt Date: 20200530
  Transmission Date: 20200714
  Serious: Yes (Life-Threatening, Hospitalization)
  Sender: FDA-Public Use
  Company Number: CA-TEVA-2020-CA-1241534

PATIENT
  Age: 71 Year
  Sex: Male
  Weight: 92 kg

DRUGS (5)
  1. DEXAMETHASONE. [Concomitant]
     Active Substance: DEXAMETHASONE
  2. PACLITAXEL. [Suspect]
     Active Substance: PACLITAXEL
     Indication: BREAST CANCER MALE
     Dosage: LIQUID INTRAVENOUS, 250 MG, 1 EVERY 3 WEEKS
     Route: 042
  3. INDAPAMIDE/PERINDOPRIL ERBUMINE [Concomitant]
     Active Substance: INDAPAMIDE\PERINDOPRIL ERBUMINE
  4. ZOPICLONE [Concomitant]
     Active Substance: ZOPICLONE
  5. ACETAMINOPHEN. [Concomitant]
     Active Substance: ACETAMINOPHEN

REACTIONS (12)
  - Non-cardiogenic pulmonary oedema [Unknown]
  - Recall phenomenon [Unknown]
  - Traumatic lung injury [Unknown]
  - Pyrexia [Unknown]
  - Hypoxia [Unknown]
  - Pulmonary oedema [Unknown]
  - Walking disability [Unknown]
  - Physical deconditioning [Unknown]
  - Pneumonia [Unknown]
  - Radiation pneumonitis [Unknown]
  - Bilevel positive airway pressure [Unknown]
  - Dyspnoea [Unknown]
